FAERS Safety Report 9689328 (Version 2)
Quarter: 2013Q4

REPORT INFORMATION
  Report Type: Spontaneous
  Country: JP (occurrence: JP)
  Receive Date: 20131114
  Receipt Date: 20131121
  Transmission Date: 20140711
  Serious: Yes (Hospitalization)
  Sender: FDA-Public Use
  Company Number: JP-B.I. PHARMACEUTICALS,INC./RIDGEFIELD-2013-BI-37026NB

PATIENT
  Age: 91 Year
  Sex: Male

DRUGS (4)
  1. SPIRIVA [Suspect]
     Indication: EMPHYSEMA
     Route: 065
     Dates: start: 2008
  2. MAGMITT [Suspect]
     Indication: FLATULENCE
     Route: 065
  3. MUCOSOLVAN / AMBROXOL HYDROCHLORIDE [Concomitant]
     Route: 065
  4. DONEPEZIL HYDROCHLORIDE / DONEPEZIL HYDROCHLORIDE [Concomitant]
     Route: 065

REACTIONS (1)
  - Gastrointestinal haemorrhage [Unknown]
